FAERS Safety Report 25113028 (Version 2)
Quarter: 2025Q3

REPORT INFORMATION
  Report Type: Spontaneous
  Country: US (occurrence: US)
  Receive Date: 20250324
  Receipt Date: 20250810
  Transmission Date: 20251020
  Serious: Yes (Other)
  Sender: ALEXION PHARMACEUTICALS
  Company Number: US-AstraZeneca-CH-00829121A

PATIENT
  Sex: Female

DRUGS (1)
  1. SYMBICORT [Suspect]
     Active Substance: BUDESONIDE\FORMOTEROL FUMARATE DIHYDRATE
     Route: 065

REACTIONS (6)
  - Anaphylactic reaction [Unknown]
  - Product dose omission issue [Unknown]
  - Asthma [Recovered/Resolved]
  - Food allergy [Unknown]
  - Hypersensitivity [Unknown]
  - Manufacturing materials issue [Unknown]
